FAERS Safety Report 17267673 (Version 1)
Quarter: 2020Q1

REPORT INFORMATION
  Report Type: Spontaneous
  Country: US (occurrence: US)
  Receive Date: 20191220
  Receipt Date: 20191220
  Transmission Date: 20200409
  Serious: Yes (Hospitalization)
  Sender: FDA-Public Use
  Company Number: None

PATIENT
  Age: 58 Year
  Sex: Male

DRUGS (1)
  1. CAPECITABINE 500MG [Suspect]
     Active Substance: CAPECITABINE
     Indication: RECTAL CANCER
     Dosage: SEE EVENT
     Route: 048
     Dates: start: 201912, end: 201912

REACTIONS (2)
  - Feeding disorder [None]
  - Dehydration [None]

NARRATIVE: CASE EVENT DATE: 20191207
